FAERS Safety Report 6377144-0 (Version None)
Quarter: 2009Q3

REPORT INFORMATION
  Report Type: 
  Country: None (occurrence: None)
  Receive Date: 20090925
  Receipt Date: 20090913
  Transmission Date: 20100115
  Serious: Yes (Death)
  Sender: FDA-Public Use
  Company Number: MA-PFIZER INC-2009268199

PATIENT
  Age: 70 Year

DRUGS (7)
  1. LYRICA [Suspect]
     Indication: NEURALGIA
     Dosage: 75 MG, 2X/DAY
     Route: 048
  2. LOSARTAN [Concomitant]
  3. FUROSEMIDE [Concomitant]
  4. KARDEGIC [Concomitant]
     Route: 048
  5. POTASSIUM [Concomitant]
  6. DIGOXIN [Concomitant]
  7. SALBUTAMOL [Concomitant]

REACTIONS (1)
  - DEATH [None]
